FAERS Safety Report 6545066-8 (Version None)
Quarter: 2010Q1

REPORT INFORMATION
  Report Type: 
  Country: None (occurrence: None)
  Receive Date: 20100115
  Receipt Date: 20100105
  Transmission Date: 20100710
  Serious: Yes (Other)
  Sender: FDA-Public Use
  Company Number: MC201000003

PATIENT
  Sex: Male

DRUGS (2)
  1. ANGIOMAX [Suspect]
     Dates: start: 20091228
  2. HEPARIN [Concomitant]

REACTIONS (3)
  - NERVOUS SYSTEM DISORDER [None]
  - OPERATIVE HAEMORRHAGE [None]
  - THROMBOSIS IN DEVICE [None]
